FAERS Safety Report 16203021 (Version 3)
Quarter: 2019Q2

REPORT INFORMATION
  Report Type: Report from Study
  Country: US (occurrence: US)
  Receive Date: 20190416
  Receipt Date: 20190627
  Transmission Date: 20190711
  Serious: Yes (Hospitalization, Disabling)
  Sender: FDA-Public Use
  Company Number: US-EISAI MEDICAL RESEARCH-EC-2019-054938

PATIENT
  Age: 83 Year
  Sex: Male

DRUGS (2)
  1. LENVIMA [Suspect]
     Active Substance: LENVATINIB
     Indication: HEPATIC CANCER
     Route: 048
     Dates: start: 20190326, end: 201906
  2. NEXAVAR [Concomitant]
     Active Substance: SORAFENIB

REACTIONS (18)
  - Palmar-plantar erythrodysaesthesia syndrome [Unknown]
  - Headache [Recovering/Resolving]
  - Taste disorder [Not Recovered/Not Resolved]
  - Asthenia [Unknown]
  - Pain in extremity [Not Recovered/Not Resolved]
  - Pneumonia [Not Recovered/Not Resolved]
  - Stomatitis [Unknown]
  - Weight decreased [Not Recovered/Not Resolved]
  - Dry skin [Not Recovered/Not Resolved]
  - Decreased appetite [Unknown]
  - Oral pain [Not Recovered/Not Resolved]
  - Weight increased [Recovering/Resolving]
  - Myalgia [Unknown]
  - Fatigue [Recovering/Resolving]
  - Increased appetite [Recovering/Resolving]
  - Dysphonia [Not Recovered/Not Resolved]
  - Arthralgia [Not Recovered/Not Resolved]
  - Neck pain [Not Recovered/Not Resolved]

NARRATIVE: CASE EVENT DATE: 2019
